FAERS Safety Report 6504441-8 (Version None)
Quarter: 2009Q4

REPORT INFORMATION
  Report Type: 
  Country: None (occurrence: None)
  Receive Date: 20091215
  Receipt Date: 20091204
  Transmission Date: 20100525
  Serious: Yes (Hospitalization, Other)
  Sender: FDA-Public Use
  Company Number: 2009AC000490

PATIENT
  Age: 71 Year
  Sex: Male

DRUGS (13)
  1. DIGOXIN [Suspect]
     Indication: HEART RATE IRREGULAR
     Dosage: 0.25 MG; PO
     Route: 048
  2. ACTOS [Concomitant]
  3. CATAPRES [Concomitant]
  4. WARFARIN [Concomitant]
  5. FUROSEMIDE [Concomitant]
  6. LISINOPRIL [Concomitant]
  7. HYDRALAZINE HCL [Concomitant]
  8. LANTUS [Concomitant]
  9. POTASSIUM CHLORIDE [Concomitant]
  10. TEMAZEPAM [Concomitant]
  11. GABAPENTIN [Concomitant]
  12. COREG [Concomitant]
  13. DIOVAN [Concomitant]

REACTIONS (13)
  - ANAEMIA [None]
  - CARDIAC FAILURE [None]
  - DIABETES MELLITUS [None]
  - DRUG TOXICITY [None]
  - GASTROOESOPHAGEAL REFLUX DISEASE [None]
  - HYPERTENSION [None]
  - INTERNATIONAL NORMALISED RATIO INCREASED [None]
  - MITRAL VALVE INCOMPETENCE [None]
  - MULTIPLE INJURIES [None]
  - PULMONARY ARTERIAL HYPERTENSION [None]
  - RENAL FAILURE [None]
  - THROMBOCYTOPENIA [None]
  - TRICUSPID VALVE INCOMPETENCE [None]
